FAERS Safety Report 4519591-5 (Version None)
Quarter: 2004Q4

REPORT INFORMATION
  Report Type: 
  Country: None (occurrence: None)
  Receive Date: 20041101
  Receipt Date: 20031031
  Transmission Date: 20050328
  Serious: Yes (Other)
  Sender: FDA-Public Use
  Company Number: HQWYE701103NOV03

PATIENT
  Age: 73 Year
  Sex: Female
  Weight: 64.92 kg

DRUGS (6)
  1. PREMARIN [Suspect]
     Indication: OSTEOPOROSIS
     Dosage: 0.625MG. DAILY, ORAL
     Route: 048
     Dates: start: 19720101
  2. PREMARIN [Suspect]
     Indication: PROPHYLAXIS
     Dosage: 0.625MG. DAILY, ORAL
     Route: 048
     Dates: start: 19720101
  3. POTASSIUM (POTASSIUM) [Concomitant]
  4. HYZAAR [Concomitant]
  5. ALLEGRA [Concomitant]
  6. CHOLESTYRAMINE RESIN (COLESTYRAMINE) [Concomitant]

REACTIONS (1)
  - POSTNASAL DRIP [None]
